FAERS Safety Report 9292814 (Version 1)
Quarter: 2013Q1

REPORT INFORMATION
  Report Type: Spontaneous
  Country: US (occurrence: None)
  Receive Date: 20121212
  Receipt Date: 20121212
  Transmission Date: 20140127
  Serious: No
  Sender: FDA-Public Use
  Company Number: 1210USA009821

PATIENT
  Age: 32 Year
  Sex: Female

DRUGS (4)
  1. VICTRELIS (BOCEPREVIR) CAPSULE [Suspect]
     Indication: HEPATITIS C
     Route: 048
     Dates: start: 201210
  2. PRILOSEC [Concomitant]
  3. SUBOXONE (BUPRENORPHINE HYDROCHLORIDE, NALOXONE HYDROCHLORIDE) [Concomitant]
  4. TOPAMAX (TOPIRAMATE) [Concomitant]

REACTIONS (10)
  - White blood cell count abnormal [None]
  - Haemoglobin abnormal [None]
  - Haematocrit abnormal [None]
  - White blood cell count decreased [None]
  - Headache [None]
  - Nausea [None]
  - Vomiting [None]
  - Fatigue [None]
  - Red blood cell count decreased [None]
  - Dyspnoea [None]
